FAERS Safety Report 5082141-1 (Version None)
Quarter: 2006Q3

REPORT INFORMATION
  Report Type: 
  Country: None (occurrence: None)
  Receive Date: 20060817
  Receipt Date: 20060515
  Transmission Date: 20061208
  Serious: Yes (Other)
  Sender: FDA-Public Use
  Company Number: 2006UW09520

PATIENT
  Sex: Male

DRUGS (10)
  1. SEROQUEL [Suspect]
     Route: 048
  2. STEROIDS [Concomitant]
     Indication: ILL-DEFINED DISORDER
  3. IMIPRAMINE [Concomitant]
  4. NEURONTIN [Concomitant]
  5. BUPROPION HCL [Concomitant]
  6. TOPAMAX [Concomitant]
  7. CLONAZEPAM [Concomitant]
  8. REMERON [Concomitant]
  9. BUSPIRONE HCL [Concomitant]
  10. XANAX [Concomitant]
     Dates: start: 19930101, end: 20010101

REACTIONS (13)
  - ANHEDONIA [None]
  - ANXIETY [None]
  - DIABETES MELLITUS [None]
  - FEAR [None]
  - FOOD CRAVING [None]
  - HYPERGLYCAEMIA [None]
  - MAJOR DEPRESSION [None]
  - OVERDOSE [None]
  - PANIC ATTACK [None]
  - POLLAKIURIA [None]
  - SUICIDAL IDEATION [None]
  - SUICIDE ATTEMPT [None]
  - WEIGHT INCREASED [None]
